FAERS Safety Report 5419260-3 (Version None)
Quarter: 2007Q3

REPORT INFORMATION
  Report Type: 
  Country: None (occurrence: None)
  Receive Date: 20070815
  Receipt Date: 20070806
  Transmission Date: 20080115
  Serious: Yes (Hospitalization)
  Sender: FDA-Public Use
  Company Number: 2005BI011592

PATIENT
  Age: 68 Year
  Sex: Female

DRUGS (2)
  1. AVONEX [Suspect]
     Indication: MULTIPLE SCLEROSIS
     Dosage: 30 UG; QW; IM
     Route: 030
     Dates: start: 20001031
  2. STEROIDS [Concomitant]

REACTIONS (5)
  - HIP ARTHROPLASTY [None]
  - OSTEONECROSIS [None]
  - PAIN IN EXTREMITY [None]
  - SHOULDER ARTHROPLASTY [None]
  - UNEVALUABLE EVENT [None]
